FAERS Safety Report 8919387 (Version 1)
Quarter: 2012Q4

REPORT INFORMATION
  Report Type: 
  Country: US (occurrence: US)
  Receive Date: 20121121
  Receipt Date: 20121121
  Transmission Date: 20130627
  Serious: No
  Sender: FDA-Public Use
  Company Number: US-PFIZER INC-2012288186

PATIENT
  Age: 4 Year
  Sex: Male
  Weight: 20.41 kg

DRUGS (1)
  1. ADVIL [Suspect]
     Indication: FEVER
     Dosage: UNK, once a day
     Route: 048
     Dates: start: 20121116

REACTIONS (3)
  - Glossodynia [Unknown]
  - Oral discomfort [Unknown]
  - Product taste abnormal [Unknown]
